FAERS Safety Report 6361554-1 (Version None)
Quarter: 2009Q3

REPORT INFORMATION
  Report Type: 
  Country: None (occurrence: None)
  Receive Date: 20090918
  Receipt Date: 20090908
  Transmission Date: 20100115
  Serious: Yes (Other)
  Sender: FDA-Public Use
  Company Number: DK-PFIZER INC-2009267304

PATIENT

DRUGS (6)
  1. SILDENAFIL CITRATE [Suspect]
     Indication: ERECTILE DYSFUNCTION
     Route: 048
  2. CIALIS [Suspect]
     Indication: ERECTILE DYSFUNCTION
     Dosage: 5 MG, 1X/DAY
  3. SIMVASTATIN [Concomitant]
  4. MAGNYL ^DAK^ [Concomitant]
     Route: 048
  5. EZETROL [Concomitant]
     Route: 048
  6. ANDROCUR [Concomitant]

REACTIONS (1)
  - CONDITION AGGRAVATED [None]
